FAERS Safety Report 8014370-9 (Version None)
Quarter: 2011Q4

REPORT INFORMATION
  Report Type: 
  Country: None (occurrence: None)
  Receive Date: 20111229
  Receipt Date: 20111228
  Transmission Date: 20120403
  Serious: Yes (Hospitalization, Other)
  Sender: FDA-Public Use
  Company Number: PHHY2011US68583

PATIENT
  Sex: Male

DRUGS (6)
  1. EXJADE [Suspect]
     Dosage: 1500 MG, DAILY
     Route: 048
  2. ACTOS [Concomitant]
     Dosage: UNK UKN, UNK
  3. SYNTHROID [Concomitant]
     Dosage: UNK UKN, UNK
  4. GLIPIZIDE [Concomitant]
     Dosage: UNK UKN, UNK
  5. EXJADE [Suspect]
     Indication: APLASIA PURE RED CELL
     Dosage: 1500 MG, DAILY
     Route: 048
     Dates: start: 20101229, end: 20110501
  6. CELEXA [Concomitant]
     Dosage: UNK UKN, UNK

REACTIONS (1)
  - PNEUMONIA [None]
